FAERS Safety Report 21857719 (Version 1)
Quarter: 2023Q1

REPORT INFORMATION
  Report Type: Spontaneous
  Country: CN (occurrence: CN)
  Receive Date: 20230113
  Receipt Date: 20230113
  Transmission Date: 20230417
  Serious: Yes (Other)
  Sender: FDA-Public Use
  Company Number: CN-UCBSA-2023000803

PATIENT
  Age: 49 Year
  Sex: Male
  Weight: 70 kg

DRUGS (6)
  1. CETIRIZINE HYDROCHLORIDE [Suspect]
     Active Substance: CETIRIZINE HYDROCHLORIDE
     Indication: Urticaria
     Dosage: 10 MILLIGRAM, ONCE DAILY (QD)
     Route: 048
     Dates: start: 20190624, end: 20190627
  2. BETAMETHASONE [Suspect]
     Active Substance: BETAMETHASONE
     Indication: Urticaria
     Dosage: 8 MILLIGRAM, ONCE DAILY (QD)
     Route: 041
     Dates: start: 20190624, end: 20190624
  3. SODIUM CHLORIDE [Concomitant]
     Active Substance: SODIUM CHLORIDE
     Indication: Product used for unknown indication
     Dosage: 100 MILLILITER, 2X/DAY (BID)
     Route: 041
     Dates: start: 20190624, end: 20190624
  4. VITAMIN C [Concomitant]
     Active Substance: ASCORBIC ACID
     Indication: Urticaria
     Dosage: 2 GRAM, ONCE DAILY (QD)
     Route: 041
     Dates: start: 20190624, end: 20190624
  5. CALCIUM GLUCONATE [Concomitant]
     Active Substance: CALCIUM GLUCONATE
     Indication: Urticaria
     Dosage: 1 GRAM, ONCE DAILY (QD)
     Route: 041
     Dates: start: 20190624, end: 20190624
  6. QING PENG [Concomitant]
     Indication: Urticaria
     Dosage: UNK
     Route: 065

REACTIONS (2)
  - Hypokalaemia [Unknown]
  - Muscular weakness [Unknown]

NARRATIVE: CASE EVENT DATE: 20190625
